FAERS Safety Report 5059577-8 (Version None)
Quarter: 2006Q3

REPORT INFORMATION
  Report Type: 
  Country: None (occurrence: None)
  Receive Date: 20060718
  Receipt Date: 20060630
  Transmission Date: 20061208
  Serious: Yes (Hospitalization, Other)
  Sender: FDA-Public Use
  Company Number: US200607000570

PATIENT
  Age: 63 Year
  Sex: Male

DRUGS (2)
  1. FORTEO [Suspect]
     Indication: OSTEOPOROSIS
     Dates: start: 20060620
  2. FORTEO [Concomitant]

REACTIONS (5)
  - ASTHENIA [None]
  - GRAND MAL CONVULSION [None]
  - PANIC ATTACK [None]
  - TONGUE INJURY [None]
  - UPPER LIMB FRACTURE [None]
